FAERS Safety Report 21595262 (Version 5)
Quarter: 2023Q2

REPORT INFORMATION
  Report Type: Report from Study
  Country: CH (occurrence: CH)
  Receive Date: 20221115
  Receipt Date: 20230612
  Transmission Date: 20230722
  Serious: Yes (Other)
  Sender: FDA-Public Use
  Company Number: CH-ABBVIE-22K-151-4519540-00

PATIENT
  Age: 71 Year
  Sex: Female
  Weight: 78 kg

DRUGS (56)
  1. VENETOCLAX [Suspect]
     Active Substance: VENETOCLAX
     Indication: Acute myeloid leukaemia
     Route: 048
     Dates: start: 20220623, end: 20220713
  2. VENETOCLAX [Suspect]
     Active Substance: VENETOCLAX
     Indication: Acute myeloid leukaemia
     Route: 048
     Dates: start: 20220720, end: 20220809
  3. VENETOCLAX [Suspect]
     Active Substance: VENETOCLAX
     Indication: Acute myeloid leukaemia
     Route: 048
     Dates: start: 20220810, end: 20220822
  4. VENETOCLAX [Suspect]
     Active Substance: VENETOCLAX
     Indication: Acute myeloid leukaemia
     Route: 048
     Dates: start: 20220714, end: 20220719
  5. AZACITIDINE [Suspect]
     Active Substance: AZACITIDINE
     Indication: Acute myeloid leukaemia
     Route: 065
     Dates: start: 20220623, end: 20220624
  6. AZACITIDINE [Suspect]
     Active Substance: AZACITIDINE
     Indication: Acute myeloid leukaemia
     Route: 065
     Dates: start: 20220625, end: 20220625
  7. AZACITIDINE [Suspect]
     Active Substance: AZACITIDINE
     Indication: Acute myeloid leukaemia
     Route: 065
     Dates: start: 20220626, end: 20220627
  8. AZACITIDINE [Suspect]
     Active Substance: AZACITIDINE
     Indication: Acute myeloid leukaemia
     Route: 065
     Dates: start: 20220720, end: 20220724
  9. AZACITIDINE [Suspect]
     Active Substance: AZACITIDINE
     Indication: Acute myeloid leukaemia
     Route: 065
     Dates: end: 20220822
  10. AMPHOTERICIN B [Concomitant]
     Active Substance: AMPHOTERICIN B
     Indication: Product used for unknown indication
     Route: 042
     Dates: start: 20220611, end: 20220615
  11. AMPHOTERICIN B [Concomitant]
     Active Substance: AMPHOTERICIN B
     Indication: Product used for unknown indication
     Route: 042
     Dates: start: 20220804, end: 20220831
  12. AMPHOTERICIN B [Concomitant]
     Active Substance: AMPHOTERICIN B
     Indication: Product used for unknown indication
     Dates: start: 20220618, end: 20220620
  13. VALACYCLOVIR HYDROCHLORIDE [Concomitant]
     Active Substance: VALACYCLOVIR HYDROCHLORIDE
     Indication: Product used for unknown indication
     Route: 048
     Dates: start: 20220623
  14. POSACONAZOLE [Concomitant]
     Active Substance: POSACONAZOLE
     Indication: Product used for unknown indication
     Route: 048
     Dates: start: 20220616, end: 20220803
  15. VALACICLOVIRI HYDROCHLORIDUM [Concomitant]
     Indication: Product used for unknown indication
     Route: 048
     Dates: start: 20220623
  16. VALACYCLOVIR HYDROCHLORIDE [Concomitant]
     Active Substance: VALACYCLOVIR HYDROCHLORIDE
     Indication: Product used for unknown indication
     Route: 048
     Dates: start: 20220623
  17. POTASSIUM CHLORIDE [Concomitant]
     Active Substance: POTASSIUM CHLORIDE
     Indication: Product used for unknown indication
     Route: 048
     Dates: start: 20220731, end: 20220919
  18. POTASSIUM CHLORIDE [Concomitant]
     Active Substance: POTASSIUM CHLORIDE
     Indication: Product used for unknown indication
     Route: 042
     Dates: start: 20220806, end: 20220831
  19. POTASSIUM CHLORIDE [Concomitant]
     Active Substance: POTASSIUM CHLORIDE
     Indication: Product used for unknown indication
     Route: 042
     Dates: start: 20220614, end: 20220726
  20. POTASSIUM CHLORIDE [Concomitant]
     Active Substance: POTASSIUM CHLORIDE
     Indication: Product used for unknown indication
     Route: 048
     Dates: start: 20220613, end: 20220727
  21. CLINDAMYCIN [Concomitant]
     Active Substance: CLINDAMYCIN
     Indication: Product used for unknown indication
     Route: 048
     Dates: start: 20220830, end: 20220919
  22. ENOXAPARIN SODIUM [Concomitant]
     Active Substance: ENOXAPARIN SODIUM
     Indication: Product used for unknown indication
     Route: 058
     Dates: start: 20220613, end: 20220831
  23. MEROPENEMUM [Concomitant]
     Indication: Product used for unknown indication
     Route: 042
     Dates: start: 20220611, end: 20220614
  24. MEROPENEMUM [Concomitant]
     Indication: Product used for unknown indication
     Route: 042
     Dates: start: 20220715, end: 20220720
  25. MEROPENEMUM [Concomitant]
     Indication: Product used for unknown indication
     Route: 042
     Dates: start: 20220731, end: 20220807
  26. Vancomycinum [Concomitant]
     Indication: Product used for unknown indication
     Route: 042
     Dates: start: 20220812, end: 20220817
  27. CEFEPIME HYDROCHLORIDE [Concomitant]
     Active Substance: CEFEPIME HYDROCHLORIDE
     Indication: Product used for unknown indication
     Route: 030
     Dates: start: 20220614, end: 20220615
  28. CEFEPIME HYDROCHLORIDE [Concomitant]
     Active Substance: CEFEPIME HYDROCHLORIDE
     Indication: Product used for unknown indication
     Route: 042
     Dates: start: 20220618, end: 20220619
  29. CEFEPIME HYDROCHLORIDE [Concomitant]
     Active Substance: CEFEPIME HYDROCHLORIDE
     Indication: Product used for unknown indication
     Route: 042
     Dates: start: 20220619, end: 20220704
  30. CEFEPIME HYDROCHLORIDE [Concomitant]
     Active Substance: CEFEPIME HYDROCHLORIDE
     Indication: Product used for unknown indication
     Route: 042
     Dates: start: 20220711, end: 20220715
  31. CEFEPIME HYDROCHLORIDE [Concomitant]
     Active Substance: CEFEPIME HYDROCHLORIDE
     Indication: Product used for unknown indication
     Route: 042
     Dates: start: 20220720, end: 20220726
  32. CEFEPIME HYDROCHLORIDE [Concomitant]
     Active Substance: CEFEPIME HYDROCHLORIDE
     Indication: Product used for unknown indication
     Route: 042
     Dates: start: 20220812, end: 20220829
  33. Cefazolinum [Concomitant]
     Indication: Product used for unknown indication
     Route: 042
     Dates: start: 20220615, end: 20220618
  34. Cefazolinum [Concomitant]
     Indication: Product used for unknown indication
     Route: 042
     Dates: start: 20220705, end: 20220711
  35. Cefazolinum [Concomitant]
     Indication: Product used for unknown indication
     Route: 042
     Dates: start: 20220726, end: 20220730
  36. ACETAMINOPHEN [Concomitant]
     Active Substance: ACETAMINOPHEN
     Indication: Product used for unknown indication
     Route: 042
     Dates: start: 20220613, end: 20220623
  37. ACETAMINOPHEN [Concomitant]
     Active Substance: ACETAMINOPHEN
     Indication: Product used for unknown indication
     Route: 042
     Dates: start: 20220716, end: 20220720
  38. FUROSEMIDE [Concomitant]
     Active Substance: FUROSEMIDE
     Indication: Product used for unknown indication
     Route: 042
     Dates: start: 20220618, end: 20220624
  39. TORASEMIDUM [Concomitant]
     Indication: Product used for unknown indication
     Route: 048
     Dates: start: 20220625, end: 20220703
  40. TORASEMIDUM [Concomitant]
     Indication: Product used for unknown indication
     Route: 048
     Dates: start: 20220703, end: 20220728
  41. METRONIDAZOLE [Concomitant]
     Active Substance: METRONIDAZOLE
     Indication: Product used for unknown indication
     Route: 048
     Dates: start: 20220712, end: 20220715
  42. METRONIDAZOLE [Concomitant]
     Active Substance: METRONIDAZOLE
     Indication: Product used for unknown indication
     Route: 048
     Dates: start: 20220720, end: 20220727
  43. METRONIDAZOLE [Concomitant]
     Active Substance: METRONIDAZOLE
     Indication: Product used for unknown indication
     Route: 048
     Dates: start: 20220817, end: 20220830
  44. ESOMEPRAZOLE [Concomitant]
     Active Substance: ESOMEPRAZOLE
     Indication: Product used for unknown indication
     Route: 048
     Dates: start: 20220616
  45. MAGNESIUM ASPARTATE [Concomitant]
     Active Substance: MAGNESIUM ASPARTATE
     Indication: Product used for unknown indication
     Route: 048
     Dates: start: 20220811, end: 20220831
  46. HUMAN RED BLOOD CELL [Concomitant]
     Active Substance: HUMAN RED BLOOD CELL
     Indication: Product used for unknown indication
     Dosage: WHEN NEEDED
     Dates: start: 20220620
  47. ALLOPURINOL [Concomitant]
     Active Substance: ALLOPURINOL
     Indication: Product used for unknown indication
     Dates: start: 20220611, end: 20220701
  48. ISAVUCONAZOLE [Concomitant]
     Active Substance: ISAVUCONAZOLE
     Indication: Product used for unknown indication
     Route: 048
     Dates: start: 20220822, end: 20220919
  49. ONDANSETRON [Concomitant]
     Active Substance: ONDANSETRON
     Indication: Product used for unknown indication
     Dates: start: 20220720, end: 20220724
  50. ONDANSETRON [Concomitant]
     Active Substance: ONDANSETRON
     Indication: Product used for unknown indication
     Dosage: TIME INTERVAL: AS NECESSARY: AS NEEDED
     Dates: start: 2022
  51. CEFEPIME HYDROCHLORIDE [Concomitant]
     Active Substance: CEFEPIME HYDROCHLORIDE
     Indication: Product used for unknown indication
     Route: 042
     Dates: start: 20220619, end: 20220704
  52. CEFEPIME HYDROCHLORIDE [Concomitant]
     Active Substance: CEFEPIME HYDROCHLORIDE
     Indication: Product used for unknown indication
     Route: 030
     Dates: start: 20220614, end: 20220615
  53. CEFEPIME HYDROCHLORIDE [Concomitant]
     Active Substance: CEFEPIME HYDROCHLORIDE
     Indication: Product used for unknown indication
     Route: 042
     Dates: start: 20220711, end: 20220715
  54. CEFEPIME HYDROCHLORIDE [Concomitant]
     Active Substance: CEFEPIME HYDROCHLORIDE
     Indication: Product used for unknown indication
     Route: 042
     Dates: start: 20220812, end: 20220829
  55. CEFEPIME HYDROCHLORIDE [Concomitant]
     Active Substance: CEFEPIME HYDROCHLORIDE
     Indication: Product used for unknown indication
     Route: 042
     Dates: start: 20220618, end: 20220619
  56. CEFEPIME HYDROCHLORIDE [Concomitant]
     Active Substance: CEFEPIME HYDROCHLORIDE
     Indication: Product used for unknown indication
     Route: 042
     Dates: start: 20220720, end: 20220726

REACTIONS (10)
  - Pneumonia fungal [Recovered/Resolved]
  - Leukopenia [Not Recovered/Not Resolved]
  - Thrombocytopenia [Recovered/Resolved]
  - Thrombocytopenia [Recovered/Resolved]
  - Erysipelas [Recovered/Resolved]
  - Thrombocytopenia [Recovered/Resolved]
  - Thrombocytopenia [Recovered/Resolved]
  - Thrombocytopenia [Recovered/Resolved]
  - Pyrexia [Recovered/Resolved]
  - Anal abscess [Recovered/Resolved]

NARRATIVE: CASE EVENT DATE: 20220702
